FAERS Safety Report 8116148-4 (Version None)
Quarter: 2012Q1

REPORT INFORMATION
  Report Type: 
  Country: None (occurrence: None)
  Receive Date: 20120201
  Receipt Date: 20120127
  Transmission Date: 20120608
  Serious: Yes (Other)
  Sender: FDA-Public Use
  Company Number: 2012SP002005

PATIENT
  Age: 64 Year
  Sex: Female

DRUGS (5)
  1. REBETOL [Suspect]
     Indication: HEPATITIS C
     Dosage: 200 MG;BID;PO
     Route: 048
     Dates: start: 20111103, end: 20111203
  2. LEXATIN [Concomitant]
  3. LYRICA [Concomitant]
  4. TORSEMIDE [Concomitant]
  5. PEGASYS [Suspect]
     Indication: HEPATITIS C
     Dosage: 180 MG;QW;IM
     Route: 030
     Dates: start: 20111103, end: 20111203

REACTIONS (1)
  - SYNCOPE [None]
